FAERS Safety Report 9124172 (Version 1)
Quarter: 2013Q1

REPORT INFORMATION
  Report Type: Spontaneous
  Country: US (occurrence: US)
  Receive Date: 20130116
  Receipt Date: 20130116
  Transmission Date: 20140127
  Serious: Yes (Other)
  Sender: FDA-Public Use
  Company Number: US-PFIZER INC-2013014702

PATIENT
  Age: 55 Year
  Sex: Male
  Weight: 97.51 kg

DRUGS (2)
  1. VIAGRA [Suspect]
     Indication: ERECTILE DYSFUNCTION
     Dosage: UNK
  2. ISOSORBIDE MONONITRATE [Concomitant]
     Indication: ANGINA PECTORIS
     Dosage: UNK
     Dates: start: 201110

REACTIONS (2)
  - Chest discomfort [Recovered/Resolved]
  - Off label use [Recovered/Resolved]
